FAERS Safety Report 17466031 (Version 1)
Quarter: 2020Q1

REPORT INFORMATION
  Report Type: Spontaneous
  Country: US (occurrence: US)
  Receive Date: 20200227
  Receipt Date: 20200227
  Transmission Date: 20200409
  Serious: No
  Sender: FDA-Public Use
  Company Number: US-JNJFOC-20200216480

PATIENT
  Sex: Male
  Weight: 97.61 kg

DRUGS (1)
  1. MENS ROGAINE EXTRA STRENGTH [Suspect]
     Active Substance: MINOXIDIL
     Indication: ALOPECIA
     Dosage: USED THE CAP
     Route: 061

REACTIONS (2)
  - Application site irritation [Recovering/Resolving]
  - Overdose [Unknown]
